FAERS Safety Report 18628604 (Version 3)
Quarter: 2021Q1

REPORT INFORMATION
  Report Type: Spontaneous
  Country: DE (occurrence: DE)
  Receive Date: 20201217
  Receipt Date: 20210211
  Transmission Date: 20210419
  Serious: Yes (Other)
  Sender: FDA-Public Use
  Company Number: DE-TEVA-2020-DE-1858476

PATIENT
  Age: 31 Year
  Sex: Female
  Weight: 53 kg

DRUGS (2)
  1. AJOVY [Suspect]
     Active Substance: FREMANEZUMAB-VFRM
     Indication: MIGRAINE
     Dosage: INJECTED FOR THE FIRST TIME, TOLERATED IT WELL AT FIRST (17?SEP?2020,18?OCT?2020,21?NOV?2020)
     Route: 058
     Dates: start: 20200917
  2. DRONABINOL. [Concomitant]
     Active Substance: DRONABINOL
     Indication: MIGRAINE

REACTIONS (4)
  - Rash [Recovering/Resolving]
  - Nocturia [Not Recovered/Not Resolved]
  - Arrhythmia [Unknown]
  - Palpitations [Not Recovered/Not Resolved]

NARRATIVE: CASE EVENT DATE: 2020
